FAERS Safety Report 24616384 (Version 4)
Quarter: 2024Q4

REPORT INFORMATION
  Report Type: Spontaneous
  Country: US (occurrence: US)
  Receive Date: 20241114
  Receipt Date: 20241213
  Transmission Date: 20250114
  Serious: No
  Sender: SANOFI AVENTIS
  Company Number: US-SA-2024SA328980

PATIENT
  Age: 26 Year
  Sex: Female

DRUGS (2)
  1. DUPIXENT [Suspect]
     Active Substance: DUPILUMAB
     Indication: Respiratory failure
     Dosage: 300 MG, QOW
     Route: 058
     Dates: start: 20240915
  2. DUPIXENT [Suspect]
     Active Substance: DUPILUMAB
     Indication: Asthma

REACTIONS (10)
  - Sneezing [Unknown]
  - Dyspnoea [Recovering/Resolving]
  - Swelling [Unknown]
  - Paraesthesia [Unknown]
  - Pruritus [Unknown]
  - Erythema [Unknown]
  - Asthma [Unknown]
  - Arthralgia [Unknown]
  - Product use in unapproved indication [Unknown]
  - Product prescribing issue [Unknown]

NARRATIVE: CASE EVENT DATE: 20240101
